FAERS Safety Report 16051295 (Version 5)
Quarter: 2019Q3

REPORT INFORMATION
  Report Type: Report from Study
  Country: CA (occurrence: CA)
  Receive Date: 20190308
  Receipt Date: 20190930
  Transmission Date: 20191004
  Serious: Yes (Other)
  Sender: FDA-Public Use
  Company Number: CA-ROCHE-2278154

PATIENT
  Age: 29 Year
  Sex: Female

DRUGS (7)
  1. FENTANYL. [Concomitant]
     Active Substance: FENTANYL
     Dosage: 37 MCG/HR
     Route: 065
  2. SYNTHROID [Concomitant]
     Active Substance: LEVOTHYROXINE SODIUM
     Route: 065
     Dates: start: 20190115
  3. OCREVUS [Suspect]
     Active Substance: OCRELIZUMAB
     Indication: RELAPSING-REMITTING MULTIPLE SCLEROSIS
     Dosage: 300 MG AT DAY 0 AND 14, THEN 600 MG EVERY 6 MONTH
     Route: 042
     Dates: start: 20190220
  4. CLONAZEPAM. [Concomitant]
     Active Substance: CLONAZEPAM
     Route: 065
  5. ZOPLICONE [Concomitant]
     Active Substance: ZOPICLONE
     Dosage: 3.75 TO 7.5 MG EACH NIGHT
     Route: 065
  6. CHAMPIX [Concomitant]
     Active Substance: VARENICLINE TARTRATE
     Route: 065
  7. LYRICA [Concomitant]
     Active Substance: PREGABALIN
     Dosage: 200 MG IN THE MORNING AND 150 MG AT NIGHT.
     Route: 065

REACTIONS (12)
  - Papilloma viral infection [Not Recovered/Not Resolved]
  - Anogenital warts [Not Recovered/Not Resolved]
  - Nasal cyst [Not Recovered/Not Resolved]
  - Oral pain [Not Recovered/Not Resolved]
  - Pain [Recovering/Resolving]
  - Decreased appetite [Unknown]
  - Stress [Unknown]
  - Pharyngitis [Unknown]
  - Urinary tract infection [Not Recovered/Not Resolved]
  - Lacrimation increased [Unknown]
  - Fatigue [Unknown]
  - Oral herpes [Unknown]

NARRATIVE: CASE EVENT DATE: 20190302
